FAERS Safety Report 9627978 (Version 1)
Quarter: 2013Q4

REPORT INFORMATION
  Report Type: Spontaneous
  Country: US (occurrence: US)
  Receive Date: 20131016
  Receipt Date: 20131016
  Transmission Date: 20140711
  Serious: Yes (Hospitalization)
  Sender: FDA-Public Use
  Company Number: US-B.I. PHARMACEUTICALS,INC./RIDGEFIELD-2013-BI-32288BP

PATIENT
  Age: 72 Year
  Sex: Female
  Weight: 76 kg

DRUGS (5)
  1. PRADAXA [Suspect]
     Indication: ANTICOAGULANT THERAPY
     Dosage: 150 MG
     Route: 048
     Dates: start: 2010
  2. INSULIN LANTUS [Concomitant]
     Indication: DIABETES MELLITUS
     Dosage: FORM: SUBCUTANEOUS
     Route: 058
  3. INSULIN HUMULOG [Concomitant]
     Indication: DIABETES MELLITUS
     Dosage: FORM: SUBCUTANEOUS
     Route: 058
  4. ZOCOR [Concomitant]
     Route: 048
  5. EDECRIN [Concomitant]
     Route: 048

REACTIONS (12)
  - Hip fracture [Not Recovered/Not Resolved]
  - Heart rate increased [Recovered/Resolved]
  - Pulmonary congestion [Not Recovered/Not Resolved]
  - Haemorrhagic disorder [Not Recovered/Not Resolved]
  - Joint injury [Not Recovered/Not Resolved]
  - Rash generalised [Not Recovered/Not Resolved]
  - Pruritus generalised [Not Recovered/Not Resolved]
  - Laceration [Not Recovered/Not Resolved]
  - Arthralgia [Not Recovered/Not Resolved]
  - Pollakiuria [Recovered/Resolved]
  - Fall [Recovered/Resolved]
  - Off label use [Not Recovered/Not Resolved]
